FAERS Safety Report 4445850-0 (Version None)
Quarter: 2004Q3

REPORT INFORMATION
  Report Type: 
  Country: None (occurrence: None)
  Receive Date: 20040903
  Receipt Date: 20040819
  Transmission Date: 20050211
  Serious: Yes (Hospitalization)
  Sender: FDA-Public Use
  Company Number: 2004-BP-07054NB

PATIENT
  Age: 61 Year
  Sex: Male

DRUGS (1)
  1. MICARDIS [Suspect]
     Indication: HYPERTENSION
     Dosage: 40 MG (NR) PO
     Route: 048
     Dates: start: 20040806, end: 20040818

REACTIONS (1)
  - HEPATIC FUNCTION ABNORMAL [None]
